FAERS Safety Report 9382224 (Version 1)
Quarter: 2013Q3

REPORT INFORMATION
  Report Type: Spontaneous
  Country: US (occurrence: US)
  Receive Date: 20130703
  Receipt Date: 20130703
  Transmission Date: 20140515
  Serious: Yes (Hospitalization)
  Sender: FDA-Public Use
  Company Number: US-DYAX CORP.-2013DX000130

PATIENT
  Age: 44 Year
  Sex: Female
  Weight: 145.28 kg

DRUGS (4)
  1. KALBITOR [Suspect]
     Indication: HEREDITARY ANGIOEDEMA
     Route: 058
     Dates: start: 201305, end: 201305
  2. KALBITOR [Suspect]
     Route: 058
  3. MORPHINE [Concomitant]
     Indication: PRODUCT USED FOR UNKNOWN INDICATION
     Route: 065
  4. VICODIN [Concomitant]
     Indication: PRODUCT USED FOR UNKNOWN INDICATION
     Route: 065

REACTIONS (5)
  - Ligament disorder [Unknown]
  - Chest pain [Unknown]
  - Arthralgia [Unknown]
  - Headache [Unknown]
  - Drug ineffective for unapproved indication [Unknown]
